FAERS Safety Report 20514631 (Version 2)
Quarter: 2022Q2

REPORT INFORMATION
  Report Type: Spontaneous
  Country: US (occurrence: US)
  Receive Date: 20220224
  Receipt Date: 20220411
  Transmission Date: 20220721
  Serious: Yes (Other)
  Sender: FDA-Public Use
  Company Number: US-TEVA-2022-US-2009917

PATIENT
  Age: 63 Year
  Sex: Female

DRUGS (3)
  1. MIMVEY [Suspect]
     Active Substance: ESTRADIOL\NORETHINDRONE ACETATE
     Indication: Hot flush
     Dosage: APPROX. 2 YRS./1MG/.5MG/UNKNOWN REASON FOR TAKING MED
     Route: 065
     Dates: start: 20200201, end: 20210711
  2. ASPIRIN [Concomitant]
     Active Substance: ASPIRIN
  3. SINGULAIR [Concomitant]
     Active Substance: MONTELUKAST SODIUM

REACTIONS (1)
  - Cerebrovascular accident [Unknown]
